FAERS Safety Report 8773168 (Version 2)
Quarter: 2012Q4

REPORT INFORMATION
  Report Type: 
  Country: US (occurrence: US)
  Receive Date: 20120907
  Receipt Date: 20121101
  Transmission Date: 20130627
  Serious: No
  Sender: FDA-Public Use
  Company Number: US-TEVA-357675USA

PATIENT
  Sex: Male

DRUGS (2)
  1. NUVIGIL [Suspect]
     Dosage: 150 Milligram Daily; Q AM
     Route: 048
  2. SEVERAL OTHER MEDICATIONS [Concomitant]

REACTIONS (1)
  - Abdominal pain [Recovered/Resolved]
